FAERS Safety Report 7720942-9 (Version None)
Quarter: 2011Q3

REPORT INFORMATION
  Report Type: 
  Country: None (occurrence: None)
  Receive Date: 20110825
  Receipt Date: 20110810
  Transmission Date: 20111222
  Serious: Yes (Hospitalization)
  Sender: FDA-Public Use
  Company Number: 15800741

PATIENT
  Age: 71 Year
  Sex: Male

DRUGS (8)
  1. ISOSORBIDE MONONITRATE [Concomitant]
  2. APIXABAN [Suspect]
     Indication: EMBOLISM
     Dosage: 10 MILLIGRAM 1 DAY ORAL
     Route: 048
     Dates: start: 20101228
  3. ENOXAPARIN SODIUM [Suspect]
     Indication: EMBOLISM
     Dosage: 89 MILLIGRAM SC
     Route: 058
     Dates: start: 20101221, end: 20101226
  4. FOSINOPRIL SODIUM [Concomitant]
  5. WARFARIN SODIUM [Suspect]
     Indication: EMBOLISM
     Dosage: 2 MILLIGRAM 1 DAY ORAL
     Route: 048
     Dates: start: 20101221
  6. SIMVASTATIN [Concomitant]
  7. PLACEBO [Suspect]
     Indication: EMBOLISM
     Dates: start: 20101201
  8. TORSEMIDE [Concomitant]

REACTIONS (5)
  - ISCHAEMIC STROKE [None]
  - CEREBRAL ARTERIOSCLEROSIS [None]
  - CAROTID ARTERY STENOSIS [None]
  - HYPERTENSIVE HEART DISEASE [None]
  - CEREBRAL CYST [None]
